FAERS Safety Report 9821781 (Version 3)
Quarter: 2014Q1

REPORT INFORMATION
  Report Type: Spontaneous
  Country: US (occurrence: US)
  Receive Date: 20140116
  Receipt Date: 20140205
  Transmission Date: 20141002
  Serious: No
  Sender: FDA-Public Use
  Company Number: US-PFIZER INC-2014012460

PATIENT
  Age: 52 Year
  Sex: Female

DRUGS (5)
  1. ALAVERT D-12 HOUR ALLERGY + SINUS [Suspect]
     Indication: HYPERSENSITIVITY
     Dosage: UNK
     Route: 048
     Dates: start: 201312
  2. ALAVERT D-12 HOUR ALLERGY + SINUS [Suspect]
     Indication: PRURITUS
  3. ALAVERT D-12 HOUR ALLERGY + SINUS [Suspect]
     Indication: EYE SWELLING
  4. ALAVERT D-12 HOUR ALLERGY + SINUS [Suspect]
     Indication: RHINORRHOEA
  5. ALAVERT D-12 HOUR ALLERGY + SINUS [Suspect]
     Indication: SINUS DISORDER

REACTIONS (1)
  - Drug ineffective [Unknown]
